FAERS Safety Report 12201186 (Version 1)
Quarter: 2016Q1

REPORT INFORMATION
  Report Type: Spontaneous
  Country: US (occurrence: US)
  Receive Date: 20160322
  Receipt Date: 20160322
  Transmission Date: 20160526
  Serious: No
  Sender: FDA-Public Use
  Company Number: US-SA-2015SA058936

PATIENT
  Age: 75 Year
  Sex: Female

DRUGS (1)
  1. NASACORT ALLERGY 24HR [Suspect]
     Active Substance: TRIAMCINOLONE ACETONIDE
     Indication: NASAL CONGESTION
     Route: 045
     Dates: start: 20150430, end: 20150430

REACTIONS (2)
  - Palpitations [Unknown]
  - Nasal congestion [Unknown]

NARRATIVE: CASE EVENT DATE: 20150430
